FAERS Safety Report 10280136 (Version 1)
Quarter: 2014Q3

REPORT INFORMATION
  Report Type: Spontaneous
  Country: US (occurrence: US)
  Receive Date: 20140707
  Receipt Date: 20140707
  Transmission Date: 20150326
  Serious: Yes (Other)
  Sender: FDA-Public Use
  Company Number: US-SA-2014SA088995

PATIENT
  Sex: Male

DRUGS (1)
  1. BCG (CONNAUGHT) IT [Suspect]
     Active Substance: BACILLUS CALMETTE-GUERIN SUBSTRAIN CONNAUGHT LIVE ANTIGEN
     Indication: BLADDER CANCER
     Route: 065

REACTIONS (1)
  - Bladder cancer recurrent [Not Recovered/Not Resolved]
